FAERS Safety Report 5426529-5 (Version None)
Quarter: 2007Q3

REPORT INFORMATION
  Report Type: 
  Country: None (occurrence: None)
  Receive Date: 20070731
  Receipt Date: 20070621
  Transmission Date: 20080115
  Serious: No
  Sender: FDA-Public Use
  Company Number: US200706005133

PATIENT
  Age: 68 Year
  Sex: Male
  Weight: 112.5 kg

DRUGS (5)
  1. BYETTA [Suspect]
     Dosage: 5 UG, 2/D, SUBCUTANEOUS   10 UG, 2/D, SUBCUTANEOUS
     Route: 058
     Dates: start: 20070401
  2. BYETTA [Suspect]
     Dosage: 5 UG, 2/D, SUBCUTANEOUS   10 UG, 2/D, SUBCUTANEOUS
     Route: 058
     Dates: start: 20070614
  3. DRUG USED IN DIABETES [Concomitant]
  4. AVALIDE [Concomitant]
  5. SIMVASTATIN [Concomitant]

REACTIONS (5)
  - DYSGEUSIA [None]
  - INJECTION SITE BRUISING [None]
  - NASOPHARYNGITIS [None]
  - NAUSEA [None]
  - WEIGHT DECREASED [None]
